FAERS Safety Report 17052235 (Version 1)
Quarter: 2019Q4

REPORT INFORMATION
  Report Type: Spontaneous
  Country: US (occurrence: US)
  Receive Date: 20191120
  Receipt Date: 20191120
  Transmission Date: 20200122
  Serious: No
  Sender: FDA-Public Use
  Company Number: US-BAYER-2019-208725

PATIENT
  Age: 59 Year
  Sex: Male
  Weight: 79 kg

DRUGS (3)
  1. ALEVE PM [Suspect]
     Active Substance: DIPHENHYDRAMINE HYDROCHLORIDE\NAPROXEN SODIUM
     Indication: INSOMNIA
     Dosage: 2 DF, QD
     Route: 048
     Dates: start: 2019
  2. ALEVE PM [Suspect]
     Active Substance: DIPHENHYDRAMINE HYDROCHLORIDE\NAPROXEN SODIUM
     Indication: INSOMNIA
     Dosage: 2 DF, QD
     Route: 048
     Dates: start: 2019
  3. ALEVE [Suspect]
     Active Substance: NAPROXEN SODIUM
     Indication: FEELING ABNORMAL
     Dosage: 3 DF, QD
     Route: 048

REACTIONS (2)
  - Product packaging quantity issue [None]
  - Product use in unapproved indication [Unknown]
